FAERS Safety Report 8024161-0 (Version None)
Quarter: 2012Q1

REPORT INFORMATION
  Report Type: 
  Country: None (occurrence: None)
  Receive Date: 20120105
  Receipt Date: 20120102
  Transmission Date: 20120608
  Serious: Yes (Hospitalization, Other)
  Sender: FDA-Public Use
  Company Number: JP-PFIZER INC-JP-WYE-H10848409

PATIENT
  Age: 71 Year
  Sex: Male
  Weight: 65 kg

DRUGS (4)
  1. PHENOBARBITAL [Concomitant]
  2. CLOTIAZEPAM [Concomitant]
  3. AMIODARONE HCL [Suspect]
     Indication: SUICIDE ATTEMPT
     Dosage: 114 TABLETS [11.4 G] ONCE
     Route: 048
  4. SERTRALINE [Concomitant]

REACTIONS (3)
  - LOSS OF CONSCIOUSNESS [None]
  - SUICIDE ATTEMPT [None]
  - INTENTIONAL OVERDOSE [None]
